FAERS Safety Report 13910236 (Version 2)
Quarter: 2017Q3

REPORT INFORMATION
  Report Type: Report from Study
  Country: US (occurrence: US)
  Receive Date: 20170828
  Receipt Date: 20170921
  Transmission Date: 20171127
  Serious: Yes (Hospitalization)
  Sender: FDA-Public Use
  Company Number: US-BAYER-2017-137514

PATIENT
  Age: 53 Year
  Sex: Female

DRUGS (4)
  1. ADEMPAS [Suspect]
     Active Substance: RIOCIGUAT
     Indication: PULMONARY ARTERIAL HYPERTENSION
     Dosage: 2 MG, TID
     Route: 048
     Dates: start: 20170426
  2. ADEMPAS [Suspect]
     Active Substance: RIOCIGUAT
     Indication: PULMONARY ARTERIAL HYPERTENSION
     Dosage: UNK
  3. PREDNISONE. [Concomitant]
     Active Substance: PREDNISONE
     Indication: PLATELET COUNT DECREASED
     Dosage: 40 MG, UNK
  4. ADEMPAS [Suspect]
     Active Substance: RIOCIGUAT
     Indication: PULMONARY ARTERIAL HYPERTENSION
     Dosage: 2 MG, TID
     Route: 048
     Dates: start: 20170427

REACTIONS (10)
  - Speech disorder [None]
  - Platelet count decreased [Recovering/Resolving]
  - Panic attack [None]
  - Heart rate abnormal [Not Recovered/Not Resolved]
  - Oedema [None]
  - Disease progression [None]
  - Coronary artery occlusion [None]
  - Dyspnoea exertional [None]
  - Hypotension [None]
  - Chest pain [None]

NARRATIVE: CASE EVENT DATE: 2017
